FAERS Safety Report 4929644-5 (Version None)
Quarter: 2006Q1

REPORT INFORMATION
  Report Type: 
  Country: None (occurrence: None)
  Receive Date: 20060127
  Receipt Date: 20051128
  Transmission Date: 20060701
  Serious: Yes (Other)
  Sender: FDA-Public Use
  Company Number: 2005163058

PATIENT
  Age: 71 Year
  Sex: Male
  Weight: 92.9874 kg

DRUGS (3)
  1. LYRICA [Suspect]
     Indication: NEUROPATHY
     Dosage: 75 MG (75 MG, 1 IN 1 D), ORAL
     Route: 048
     Dates: start: 20051107, end: 20051108
  2. CARDIOVASCULAR SYSTEM  DRUGS [Concomitant]
  3. VITAMINS [Concomitant]

REACTIONS (1)
  - MEMORY IMPAIRMENT [None]
